APPROVED DRUG PRODUCT: DOFETILIDE
Active Ingredient: DOFETILIDE
Strength: 0.125MG
Dosage Form/Route: CAPSULE;ORAL
Application: A213338 | Product #001 | TE Code: AB
Applicant: ACCORD HEALTHCARE INC
Approved: Jun 19, 2020 | RLD: No | RS: No | Type: RX